FAERS Safety Report 13899518 (Version 1)
Quarter: 2017Q3

REPORT INFORMATION
  Report Type: Spontaneous
  Country: NO (occurrence: NO)
  Receive Date: 20170824
  Receipt Date: 20170824
  Transmission Date: 20171127
  Serious: Yes (Death)
  Sender: FDA-Public Use
  Company Number: NO-009507513-1708NOR008333

PATIENT
  Age: 78 Year
  Sex: Female

DRUGS (9)
  1. METFORMIN [Suspect]
     Active Substance: METFORMIN HYDROCHLORIDE
     Indication: TYPE 2 DIABETES MELLITUS
     Dosage: 1000 + 500 MG
     Route: 048
     Dates: end: 20170801
  2. METOPROLOL TARTRATE. [Concomitant]
     Active Substance: METOPROLOL TARTRATE
     Dosage: 50 MG, QD
     Route: 048
     Dates: end: 20170802
  3. KLEXANE [Concomitant]
     Active Substance: ENOXAPARIN
     Dosage: 40 MG, BID
     Dates: start: 20170729, end: 20170801
  4. ALLOPURINOL. [Concomitant]
     Active Substance: ALLOPURINOL
     Indication: GOUT
     Dosage: 200 MG, QD
     Route: 048
  5. NIFEDIPINE. [Concomitant]
     Active Substance: NIFEDIPINE
     Dosage: 60 MG, QD
     Route: 048
     Dates: end: 20170801
  6. COZAAR COMP [Suspect]
     Active Substance: HYDROCHLOROTHIAZIDE\LOSARTAN POTASSIUM
     Indication: HYPERTENSION
     Dosage: 100 MG/12.5 MG
     Route: 048
     Dates: end: 20170801
  7. FURIX [Concomitant]
     Active Substance: FUROSEMIDE
     Indication: CARDIAC FAILURE
     Dosage: 20 MG, QD
     Dates: start: 20170728, end: 20170729
  8. SURMONTIL [Concomitant]
     Active Substance: TRIMIPRAMINE MALEATE
     Dosage: 10 MG, QD
  9. ATORVASTATIN [Concomitant]
     Active Substance: ATORVASTATIN
     Dosage: 10 MG, QD
     Route: 048

REACTIONS (1)
  - Lactic acidosis [Fatal]

NARRATIVE: CASE EVENT DATE: 201707
